FAERS Safety Report 10537230 (Version 3)
Quarter: 2015Q1

REPORT INFORMATION
  Report Type: Spontaneous
  Country: US (occurrence: US)
  Receive Date: 20141023
  Receipt Date: 20150325
  Transmission Date: 20150720
  Serious: Yes (Death, Other)
  Sender: FDA-Public Use
  Company Number: US-PFIZER INC-2013185169

PATIENT
  Age: 52 Year
  Sex: Male
  Weight: 68 kg

DRUGS (2)
  1. XALKORI [Suspect]
     Active Substance: CRIZOTINIB
     Dosage: UNK, 2X/DAY
     Dates: start: 20130604, end: 20140922
  2. XALKORI [Suspect]
     Active Substance: CRIZOTINIB
     Indication: NON-SMALL CELL LUNG CANCER
     Dosage: 250 MG, 2X/DAY
     Route: 048
     Dates: start: 20130716

REACTIONS (7)
  - Non-small cell lung cancer [Fatal]
  - Disease progression [Fatal]
  - Blood potassium decreased [Unknown]
  - Protein total decreased [Unknown]
  - Malnutrition [Fatal]
  - Dysgeusia [Unknown]
  - Weight decreased [Unknown]
